FAERS Safety Report 9574944 (Version 7)
Quarter: 2015Q2

REPORT INFORMATION
  Report Type: Report from Study
  Country: FR (occurrence: FR)
  Receive Date: 20131001
  Receipt Date: 20150417
  Transmission Date: 20150821
  Serious: Yes (Hospitalization)
  Sender: FDA-Public Use
  Company Number: FR-ROCHE-1279296

PATIENT
  Age: 40 Year
  Sex: Female
  Weight: 64 kg

DRUGS (8)
  1. TRASTUZUMAB [Suspect]
     Active Substance: TRASTUZUMAB
     Indication: HER-2 POSITIVE BREAST CANCER
     Dosage: LOADING DOSE. LAST DOSE PRIOR TO FIRST EPISODE: 10/SEP/2013.
     Route: 042
     Dates: start: 20130910, end: 20130910
  2. 5-FU [Suspect]
     Active Substance: FLUOROURACIL
     Indication: HER-2 POSITIVE BREAST CANCER
     Dosage: LAST DOSE PRIOR TO THE EVENT: 19/AUG/2013.
     Route: 042
     Dates: start: 20130704, end: 20130819
  3. SUBUTEX [Concomitant]
     Active Substance: BUPRENORPHINE HYDROCHLORIDE
     Route: 065
     Dates: start: 2008
  4. PLACEBO [Suspect]
     Active Substance: UNSPECIFIED INGREDIENT
     Dosage: MAINTAINANCE DOSE.
     Route: 042
  5. PLACEBO [Suspect]
     Active Substance: UNSPECIFIED INGREDIENT
     Indication: HER-2 POSITIVE BREAST CANCER
     Dosage: LOADING DOSE. LAST DOSE PRIOR TO FIRST EPISODE: 10/SEP/2013.
     Route: 042
     Dates: start: 20130910, end: 20130910
  6. EPIRUBICIN [Suspect]
     Active Substance: EPIRUBICIN
     Indication: HER-2 POSITIVE BREAST CANCER
     Dosage: LAST DOSE PRIOR TO THE EVENT: 19/AUG/2013.
     Route: 042
     Dates: start: 20130704, end: 20130819
  7. CYCLOPHOSPHAMIDE. [Suspect]
     Active Substance: CYCLOPHOSPHAMIDE
     Indication: HER-2 POSITIVE BREAST CANCER
     Dosage: LAST DOSE PRIOR TO THE EVENT: 19/AUG/2013.
     Route: 042
     Dates: start: 20130704, end: 20130819
  8. DOCETAXEL. [Suspect]
     Active Substance: DOCETAXEL
     Indication: HER-2 POSITIVE BREAST CANCER
     Dosage: LAST DOSE PRIOR TO THE EVENT: 11/SEP/2013
     Route: 042
     Dates: start: 20130911

REACTIONS (2)
  - Chest pain [Recovered/Resolved]
  - Pericardial effusion [Recovered/Resolved]

NARRATIVE: CASE EVENT DATE: 20130917
